FAERS Safety Report 4666415-1 (Version None)
Quarter: 2005Q2

REPORT INFORMATION
  Report Type: 
  Country: None (occurrence: None)
  Receive Date: 20050519
  Receipt Date: 20031208
  Transmission Date: 20051028
  Serious: Yes (Hospitalization, Disabling, Other)
  Sender: FDA-Public Use
  Company Number: 2003AP04334

PATIENT
  Age: 25215 Day
  Sex: Female
  Weight: 47 kg

DRUGS (4)
  1. IRESSA [Suspect]
     Indication: GASTRIC CANCER
     Route: 048
     Dates: start: 20031111, end: 20031211
  2. IRESSA [Suspect]
     Route: 048
     Dates: start: 20031217
  3. RADIOTHERAPY [Suspect]
     Indication: GASTRIC CANCER
     Dosage: 1.8 GY/DAY
     Dates: start: 20031118
  4. NEXIUM [Concomitant]
     Indication: PROPHYLAXIS AGAINST GASTROINTESTINAL ULCER
     Dosage: 20-40 MG/DAY
     Route: 048

REACTIONS (3)
  - HAEMATEMESIS [None]
  - NAUSEA [None]
  - VOMITING [None]
